FAERS Safety Report 19727875 (Version 1)
Quarter: 2021Q3

REPORT INFORMATION
  Report Type: Report from Study
  Country: US (occurrence: US)
  Receive Date: 20210820
  Receipt Date: 20210820
  Transmission Date: 20211014
  Serious: Yes (Hospitalization, Other)
  Sender: FDA-Public Use
  Company Number: NVSC2021US185658

PATIENT
  Sex: Female

DRUGS (1)
  1. ENTRESTO [Suspect]
     Active Substance: SACUBITRIL\VALSARTAN
     Indication: PRODUCT USED FOR UNKNOWN INDICATION
     Dosage: UNK UNK, BID
     Route: 048

REACTIONS (8)
  - Platelet count decreased [Unknown]
  - Hyperhidrosis [Unknown]
  - Dehydration [Unknown]
  - Acute kidney injury [Unknown]
  - Vomiting [Unknown]
  - Metabolic acidosis [Unknown]
  - Cholelithiasis [Unknown]
  - Depression [Unknown]
